FAERS Safety Report 21286800 (Version 1)
Quarter: 2022Q3

REPORT INFORMATION
  Report Type: Spontaneous
  Country: US (occurrence: US)
  Receive Date: 20220902
  Receipt Date: 20220902
  Transmission Date: 20221026
  Serious: Yes (Other)
  Sender: FDA-Public Use
  Company Number: US-FreseniusKabi-FK202211938

PATIENT
  Age: 23 Year
  Sex: Male

DRUGS (2)
  1. DIPRIVAN [Suspect]
     Active Substance: PROPOFOL
     Indication: Sedation
     Dosage: INFUSION WAS STARTED AT 20?G/KG/MIN WITH A TITRATION OF 5?10 ?G/KG/MIN EVERY 5 MIN AS NEEDED.
     Route: 065
  2. Levophed (norepinephrine) [Concomitant]
     Indication: Hypotension

REACTIONS (1)
  - Propofol infusion syndrome [Recovered/Resolved]
